FAERS Safety Report 6779173-1 (Version None)
Quarter: 2010Q2

REPORT INFORMATION
  Report Type: 
  Country: None (occurrence: None)
  Receive Date: 20100520
  Receipt Date: 20090521
  Transmission Date: 20101027
  Serious: Yes (Other)
  Sender: FDA-Public Use
  Company Number: 2008056598

PATIENT
  Age: 47 Year
  Sex: Female
  Weight: 72 kg

DRUGS (6)
  1. PROVERA [Suspect]
     Indication: HORMONE REPLACEMENT THERAPY
     Dosage: 10 MG, ORAL
     Route: 048
     Dates: start: 19850220, end: 19880317
  2. PREMARIN [Suspect]
     Indication: HORMONE REPLACEMENT THERAPY
     Dosage: 0.625 MG
     Dates: start: 19850220, end: 19880317
  3. CONTRACEPTIVE, UNSPECIFIED () [Suspect]
     Indication: CONTRACEPTION
     Dates: start: 19680101, end: 19680101
  4. VANCERIL (BECLOMETASONE DIPROPIONATE) [Concomitant]
  5. ADAPIN (DOXEPIN HYDROCHLORIDE) [Concomitant]
  6. SYNTHROID [Concomitant]

REACTIONS (1)
  - BREAST CANCER FEMALE [None]
